FAERS Safety Report 17795341 (Version 1)
Quarter: 2020Q2

REPORT INFORMATION
  Report Type: Spontaneous
  Country: US (occurrence: US)
  Receive Date: 20200515
  Receipt Date: 20200515
  Transmission Date: 20200714
  Serious: No
  Sender: FDA-Public Use
  Company Number: US-ASTRAZENECA-2019SF73685

PATIENT
  Age: 352 Day
  Sex: Female
  Weight: 6.9 kg

DRUGS (21)
  1. CALCITRIOL. [Concomitant]
     Active Substance: CALCITRIOL
  2. ERYTHROMYCIN ETHYLSUCCINATE, [Concomitant]
  3. MUPIROCIN. [Concomitant]
     Active Substance: MUPIROCIN
     Dosage: 2 %
  4. ACETAMINOPHEN. [Concomitant]
     Active Substance: ACETAMINOPHEN
  5. TRIAMCINOLONE ACETONIDE. [Concomitant]
     Active Substance: TRIAMCINOLONE ACETONIDE
  6. IRON [Concomitant]
     Active Substance: IRON
  7. SYNAGIS [Suspect]
     Active Substance: PALIVIZUMAB
     Indication: RESPIRATORY SYNCYTIAL VIRUS INFECTION
     Route: 030
     Dates: start: 20191128
  8. NYSTATIN. [Concomitant]
     Active Substance: NYSTATIN
     Dosage: 100000/G
  9. MIRALAX [Concomitant]
     Active Substance: POLYETHYLENE GLYCOL 3350
     Dosage: 17G/DOSE POWDER
  10. SODIUM CHLORIDE. [Concomitant]
     Active Substance: SODIUM CHLORIDE
     Dosage: 0.9 % IV SOLN,
  11. VITAMIN D [Concomitant]
     Active Substance: VITAMIN D NOS
  12. AMLODIPINE BESYLATE. [Concomitant]
     Active Substance: AMLODIPINE BESYLATE
     Dosage: 100 % POWDER,
  13. OMEPRAZOLE. [Concomitant]
     Active Substance: OMEPRAZOLE
  14. EPOGEN [Concomitant]
     Active Substance: ERYTHROPOIETIN
     Dosage: 2000/ML VIAL
  15. HEPARIN [Concomitant]
     Active Substance: HEPARIN SODIUM
  16. VELTASSA [Concomitant]
     Active Substance: PATIROMER
     Dosage: 8.4 GRAM POWD PACK
  17. MELATONIN + L-THEANINE [Concomitant]
  18. COLACE [Concomitant]
     Active Substance: DOCUSATE SODIUM
  19. CYPROHEPTADINE HCL [Concomitant]
     Active Substance: CYPROHEPTADINE HYDROCHLORIDE
     Dosage: 2 MG/5 ML SYRUP,
  20. GENTAMICIN SULFATE. [Concomitant]
     Active Substance: GENTAMICIN SULFATE
  21. SODIUM PHOSPHATE [Concomitant]
     Active Substance: SODIUM PHOSPHATE

REACTIONS (2)
  - Rash [Unknown]
  - Rash papular [Unknown]

NARRATIVE: CASE EVENT DATE: 20191128
